FAERS Safety Report 14432742 (Version 9)
Quarter: 2019Q1

REPORT INFORMATION
  Report Type: Spontaneous
  Country: CA (occurrence: CA)
  Receive Date: 20180124
  Receipt Date: 20190207
  Transmission Date: 20190417
  Serious: Yes (Hospitalization, Other)
  Sender: FDA-Public Use
  Company Number: CA-PFIZER INC-2018027771

PATIENT
  Age: 40 Year
  Sex: Female
  Weight: 75 kg

DRUGS (9)
  1. INFLECTRA [Suspect]
     Active Substance: INFLIXIMAB-DYYB
     Dosage: 600 MG, CYCLIC (EVERY 6 WEEKS)
     Route: 042
     Dates: start: 20190130
  2. SOLU-MEDROL [Suspect]
     Active Substance: METHYLPREDNISOLONE SODIUM SUCCINATE
     Dosage: UNK
     Route: 042
     Dates: start: 201710
  3. INFLECTRA [Suspect]
     Active Substance: INFLIXIMAB-DYYB
     Dosage: 600 MG, CYCLIC (EVERY 6 WEEKS)
     Route: 042
     Dates: start: 20181219
  4. METHOTREXATE SODIUM. [Suspect]
     Active Substance: METHOTREXATE SODIUM
     Dosage: 10 MG, WEEKLY
     Dates: start: 201710
  5. INFLECTRA [Suspect]
     Active Substance: INFLIXIMAB-DYYB
     Dosage: 600 MG, CYCLIC (AT 1, 4 WEEKS, THEN 300 MG EVERY 8 WEEKS)
     Route: 042
     Dates: start: 20180117
  6. INFLECTRA [Suspect]
     Active Substance: INFLIXIMAB-DYYB
     Indication: COLITIS ULCERATIVE
     Dosage: 600 MG, CYCLIC (AT 1, 4 WEEKS, THEN 300 MG EVERY 8 WEEKS)
     Route: 042
     Dates: start: 20171022
  7. PREDNISONE. [Concomitant]
     Active Substance: PREDNISONE
     Dosage: 40 MG (IN DECREASING DOSE), UNK
     Dates: start: 201710
  8. INFLECTRA [Suspect]
     Active Substance: INFLIXIMAB-DYYB
     Dosage: 600 MG, CYCLIC (AT 1, 4 WEEKS, THEN 300 MG EVERY 8 WEEKS)
     Route: 042
     Dates: start: 20180228
  9. INFLECTRA [Suspect]
     Active Substance: INFLIXIMAB-DYYB
     Dosage: 600 MG, CYCLIC (EVERY 6 WEEKS)
     Route: 042
     Dates: start: 20180411

REACTIONS (3)
  - Product use issue [Unknown]
  - Pulmonary embolism [Recovering/Resolving]
  - Condition aggravated [Unknown]

NARRATIVE: CASE EVENT DATE: 20171022
